FAERS Safety Report 8226572-7 (Version None)
Quarter: 2012Q1

REPORT INFORMATION
  Report Type: 
  Country: None (occurrence: None)
  Receive Date: 20120322
  Receipt Date: 20120312
  Transmission Date: 20120608
  Serious: No
  Sender: FDA-Public Use
  Company Number: US-BIOGENIDEC-2012BI008977

PATIENT
  Age: 63 Year
  Sex: Male

DRUGS (3)
  1. AVONEX [Concomitant]
     Route: 030
     Dates: start: 20090717
  2. TYSABRI [Suspect]
     Indication: MULTIPLE SCLEROSIS
     Route: 042
     Dates: start: 20110928
  3. AVONEX [Concomitant]
     Indication: MULTIPLE SCLEROSIS
     Route: 030
     Dates: start: 20090701

REACTIONS (1)
  - TRIGEMINAL NEURALGIA [None]
